FAERS Safety Report 10746285 (Version 1)
Quarter: 2015Q1

REPORT INFORMATION
  Report Type: Spontaneous
  Country: CA (occurrence: CA)
  Receive Date: 20150128
  Receipt Date: 20150128
  Transmission Date: 20150721
  Serious: Yes (Other)
  Sender: FDA-Public Use
  Company Number: CA-PFIZER INC-2015028046

PATIENT
  Age: 11 Year
  Sex: Female

DRUGS (8)
  1. MYCOPHENOLATE MOFETIL. [Suspect]
     Active Substance: MYCOPHENOLATE MOFETIL
     Indication: PROPHYLAXIS AGAINST TRANSPLANT REJECTION
  2. ANTILYMPHOCYTE IMMUNOGLOBULINS [Suspect]
     Active Substance: THYMOCYTE IMMUNE GLOBULIN NOS
  3. AZATHIOPRINE. [Suspect]
     Active Substance: AZATHIOPRINE
  4. RITUXIMAB [Suspect]
     Active Substance: RITUXIMAB
     Indication: POST TRANSPLANT LYMPHOPROLIFERATIVE DISORDER
     Dosage: 375 MG/M2, EVERY 4 WEEKS
     Route: 042
  5. METHYLPREDNISOLONE. [Suspect]
     Active Substance: METHYLPREDNISOLONE
  6. RAPAMUNE [Suspect]
     Active Substance: SIROLIMUS
  7. TACROLIMUS. [Suspect]
     Active Substance: TACROLIMUS
  8. PREDNISONE. [Suspect]
     Active Substance: PREDNISONE

REACTIONS (5)
  - Transplant rejection [Recovered/Resolved]
  - Epstein-Barr virus infection [Recovered/Resolved]
  - Diarrhoea [Recovered/Resolved]
  - Organising pneumonia [Recovered/Resolved]
  - Post transplant lymphoproliferative disorder [Recovered/Resolved]
